FAERS Safety Report 8011892-1 (Version None)
Quarter: 2011Q4

REPORT INFORMATION
  Report Type: 
  Country: None (occurrence: None)
  Receive Date: 20111228
  Receipt Date: 20111219
  Transmission Date: 20120403
  Serious: Yes (Death)
  Sender: FDA-Public Use
  Company Number: US-PFIZER INC-2011309713

PATIENT
  Age: 60 Year
  Sex: Female

DRUGS (4)
  1. LORAZEPAM [Suspect]
  2. MORPHINE SULFATE [Suspect]
  3. HYDROMORPHONE HCL [Suspect]
  4. DIAZEPAM [Suspect]

REACTIONS (3)
  - TOXICITY TO VARIOUS AGENTS [None]
  - COMPLETED SUICIDE [None]
  - INTENTIONAL DRUG MISUSE [None]
